FAERS Safety Report 7754967-4 (Version None)
Quarter: 2011Q3

REPORT INFORMATION
  Report Type: 
  Country: None (occurrence: None)
  Receive Date: 20110916
  Receipt Date: 20110909
  Transmission Date: 20111222
  Serious: No
  Sender: FDA-Public Use
  Company Number: US-BIOGENIDEC-2011BI035012

PATIENT
  Sex: Female

DRUGS (6)
  1. TYSABRI [Suspect]
     Route: 042
     Dates: start: 20080703, end: 20100320
  2. TYSABRI [Suspect]
     Route: 042
     Dates: start: 20070316, end: 20070511
  3. AVONEX [Concomitant]
     Route: 030
     Dates: start: 20070601
  4. AVONEX [Concomitant]
     Route: 030
     Dates: start: 20050621
  5. TYSABRI [Suspect]
     Indication: MULTIPLE SCLEROSIS
     Route: 042
     Dates: start: 20110304
  6. AVONEX [Concomitant]
     Indication: MULTIPLE SCLEROSIS
     Route: 030
     Dates: start: 20100806

REACTIONS (2)
  - MALAISE [None]
  - MEMORY IMPAIRMENT [None]
